FAERS Safety Report 9403217 (Version 1)
Quarter: 2013Q3

REPORT INFORMATION
  Report Type: Spontaneous
  Country: US (occurrence: None)
  Receive Date: 20130715
  Receipt Date: 20130715
  Transmission Date: 20140515
  Serious: Yes (Hospitalization)
  Sender: FDA-Public Use
  Company Number: None

PATIENT
  Age: 64 Year
  Sex: Male
  Weight: 75.6 kg

DRUGS (2)
  1. IBUPROFEN [Suspect]
     Indication: PAIN
     Dosage: 30 TAB
     Route: 048
     Dates: start: 20130321, end: 20130421
  2. CLOPIDOGREL [Suspect]
     Route: 048
     Dates: start: 20110303, end: 20130421

REACTIONS (2)
  - Pain in extremity [None]
  - Duodenal ulcer perforation [None]
